FAERS Safety Report 7719038-1 (Version None)
Quarter: 2011Q3

REPORT INFORMATION
  Report Type: 
  Country: None (occurrence: None)
  Receive Date: 20110830
  Receipt Date: 20110829
  Transmission Date: 20111222
  Serious: Yes (Other)
  Sender: FDA-Public Use
  Company Number: US-PFIZER INC-2011108652

PATIENT
  Sex: Female
  Weight: 107 kg

DRUGS (3)
  1. ALPRAZOLAM [Suspect]
     Indication: ANXIETY
  2. ALPRAZOLAM [Suspect]
     Indication: DEPRESSION
     Dosage: UNK
     Route: 048
  3. PARNATE [Suspect]
     Indication: DEPRESSION
     Dosage: UNK
     Route: 048

REACTIONS (3)
  - DRUG INEFFECTIVE [None]
  - WEIGHT INCREASED [None]
  - ILEOSTOMY [None]
